FAERS Safety Report 21913655 (Version 1)
Quarter: 2023Q1

REPORT INFORMATION
  Report Type: Spontaneous
  Country: US (occurrence: US)
  Receive Date: 20230125
  Receipt Date: 20230125
  Transmission Date: 20230418
  Serious: No
  Sender: FDA-Public Use
  Company Number: US-ALLERGAN-2215377US

PATIENT

DRUGS (1)
  1. BOTOX [Suspect]
     Active Substance: ONABOTULINUMTOXINA
     Indication: Migraine
     Dosage: UNK UNK, SINGLE

REACTIONS (8)
  - Asthenopia [Unknown]
  - Depression [Unknown]
  - Somnolence [Unknown]
  - Facial paralysis [Unknown]
  - Muscle atrophy [Unknown]
  - Muscular weakness [Unknown]
  - Eyelid ptosis [Unknown]
  - Drug ineffective [Unknown]
